FAERS Safety Report 10369349 (Version 1)
Quarter: 2014Q3

REPORT INFORMATION
  Report Type: Spontaneous
  Country: US (occurrence: US)
  Receive Date: 20140807
  Receipt Date: 20140807
  Transmission Date: 20150326
  Serious: No
  Sender: FDA-Public Use
  Company Number: US-ABBVIE-13P-163-1166048-00

PATIENT
  Sex: Female
  Weight: 74.91 kg

DRUGS (1)
  1. DIVALPROEX SODIUM ER [Suspect]
     Active Substance: DIVALPROEX SODIUM
     Indication: PRODUCT USED FOR UNKNOWN INDICATION
     Dosage: 2 TABS
     Dates: start: 2010, end: 2010

REACTIONS (1)
  - Pain of skin [Recovered/Resolved]

NARRATIVE: CASE EVENT DATE: 2010
